FAERS Safety Report 20790243 (Version 1)
Quarter: 2022Q2

REPORT INFORMATION
  Report Type: Spontaneous
  Country: GB (occurrence: None)
  Receive Date: 20220505
  Receipt Date: 20220505
  Transmission Date: 20220721
  Serious: Yes (Other)
  Sender: FDA-Public Use
  Company Number: GB-Merck Healthcare KGaA-9317428

PATIENT
  Sex: Female

DRUGS (1)
  1. GLUCOPHAGE [Suspect]
     Active Substance: METFORMIN HYDROCHLORIDE
     Indication: Polycystic ovaries

REACTIONS (3)
  - Coeliac disease [Unknown]
  - Condition aggravated [Unknown]
  - Off label use [Unknown]
